FAERS Safety Report 13846084 (Version 1)
Quarter: 2017Q3

REPORT INFORMATION
  Report Type: Spontaneous
  Country: US (occurrence: US)
  Receive Date: 20170808
  Receipt Date: 20170808
  Transmission Date: 20171127
  Serious: No
  Sender: FDA-Public Use
  Company Number: US-ROCHE-747539

PATIENT
  Sex: Female

DRUGS (1)
  1. BONIVA [Suspect]
     Active Substance: IBANDRONATE SODIUM
     Indication: OSTEOPENIA
     Route: 065
     Dates: start: 2007, end: 2008

REACTIONS (4)
  - Vomiting [Unknown]
  - Arthralgia [Unknown]
  - Malaise [Unknown]
  - Gastrooesophageal reflux disease [Unknown]
